FAERS Safety Report 18265489 (Version 1)
Quarter: 2020Q3

REPORT INFORMATION
  Report Type: Other
  Country: US (occurrence: US)
  Receive Date: 20200914
  Receipt Date: 20200914
  Transmission Date: 20201103
  Serious: No
  Sender: FDA-Public Use
  Company Number: US-LEADIANT BIOSCIENCES INC-2020STPI000240

PATIENT
  Sex: Female

DRUGS (14)
  1. LEVETIRACETAM. [Concomitant]
     Active Substance: LEVETIRACETAM
  2. CETIRIZINE [Concomitant]
     Active Substance: CETIRIZINE HYDROCHLORIDE
  3. LACTULOSE. [Concomitant]
     Active Substance: LACTULOSE
  4. METHYLPRED [Concomitant]
     Active Substance: METHYLPREDNISOLONE
  5. ALPRAZOLAM. [Concomitant]
     Active Substance: ALPRAZOLAM
  6. DIAZEPAM. [Concomitant]
     Active Substance: DIAZEPAM
  7. MATULANE [Suspect]
     Active Substance: PROCARBAZINE HYDROCHLORIDE
     Indication: BRAIN NEOPLASM MALIGNANT
     Dosage: 50 MILLIGRAM, QD FOR 2 WEEKS DAYS 8 TO 21
     Dates: start: 20200126
  8. LAMOTRIGINE. [Concomitant]
     Active Substance: LAMOTRIGINE
  9. LEVOFLOXACIN. [Concomitant]
     Active Substance: LEVOFLOXACIN
  10. OXCARBAZEPIN [Concomitant]
     Active Substance: OXCARBAZEPINE
  11. OXYCODONE/APAP [OXYCODONE HYDROCHLORIDE;PARACETAMOL] [Concomitant]
  12. TOPIRAMATE. [Concomitant]
     Active Substance: TOPIRAMATE
  13. DEEP SEA PREMIUM SALINE [Concomitant]
  14. ONDANSETRON [Concomitant]
     Active Substance: ONDANSETRON

REACTIONS (3)
  - Chills [Unknown]
  - Cold sweat [Unknown]
  - Hyperhidrosis [Unknown]
